FAERS Safety Report 4332780-8 (Version None)
Quarter: 2004Q1

REPORT INFORMATION
  Report Type: 
  Country: None (occurrence: None)
  Receive Date: 20040330
  Receipt Date: 20040312
  Transmission Date: 20041129
  Serious: Yes (Hospitalization)
  Sender: FDA-Public Use
  Company Number: 2003-111292-NL

PATIENT
  Age: 84 Year
  Sex: Female

DRUGS (7)
  1. DANAPAROID SODIUM [Suspect]
     Indication: DISSEMINATED INTRAVASCULAR COAGULATION
     Dosage: SEE IMAGE
     Route: 042
     Dates: start: 20030716, end: 20030716
  2. DANAPAROID SODIUM [Suspect]
     Indication: DISSEMINATED INTRAVASCULAR COAGULATION
     Dosage: SEE IMAGE
     Route: 042
     Dates: start: 20030717, end: 20030717
  3. GABEXATE MESILATE [Concomitant]
  4. FAMOTIDINE [Concomitant]
  5. IMMUNOGLOBULIN HUMAN NORMAL [Concomitant]
  6. FLOMOXEP SODIUM [Concomitant]
  7. METHYLPREDNISOLONE SODIUM SUCCINATE [Concomitant]

REACTIONS (3)
  - ANASTOMOTIC HAEMORRHAGE [None]
  - POST PROCEDURAL HAEMORRHAGE [None]
  - SHOCK HAEMORRHAGIC [None]
